FAERS Safety Report 9733438 (Version 1)
Quarter: 2013Q4

REPORT INFORMATION
  Report Type: Spontaneous
  Country: US (occurrence: None)
  Receive Date: 20131204
  Receipt Date: 20131204
  Transmission Date: 20140711
  Serious: No
  Sender: FDA-Public Use
  Company Number: None

PATIENT
  Age: 51 Year
  Sex: Male

DRUGS (1)
  1. NUCYNTA [Suspect]
     Dosage: 1-2 TBS PO Q 6HRS.
     Route: 048
     Dates: start: 20131122, end: 20131124

REACTIONS (2)
  - Thinking abnormal [None]
  - Tremor [None]
